FAERS Safety Report 8979732 (Version 1)
Quarter: 2012Q4

REPORT INFORMATION
  Report Type: 
  Country: EC (occurrence: EC)
  Receive Date: 20121221
  Receipt Date: 20121221
  Transmission Date: 20130627
  Serious: Yes (Death, Other)
  Sender: FDA-Public Use
  Company Number: PHHY2012EC117506

PATIENT
  Age: 65 Year
  Sex: Male
  Weight: 100 kg

DRUGS (2)
  1. DIOVAN HCT [Suspect]
     Dosage: 1 DF (160 of vals and 12.5 hydro), UNK
     Route: 048
  2. ORLISTAT [Concomitant]
     Indication: WEIGHT INCREASED

REACTIONS (2)
  - Acute myocardial infarction [Fatal]
  - Blood pressure increased [Unknown]
